FAERS Safety Report 7026769-8 (Version None)
Quarter: 2010Q4

REPORT INFORMATION
  Report Type: 
  Country: None (occurrence: None)
  Receive Date: 20101004
  Receipt Date: 20100923
  Transmission Date: 20110411
  Serious: Yes (Hospitalization)
  Sender: FDA-Public Use
  Company Number: BR-ASTRAZENECA-2010SE45376

PATIENT
  Age: 57 Year
  Sex: Female
  Weight: 86 kg

DRUGS (3)
  1. ATACAND HCT [Suspect]
     Indication: HYPERTENSION
     Dosage: 8/12.5 MG DAILY
     Route: 048
     Dates: start: 20070101, end: 20100809
  2. ATACAND HCT [Suspect]
     Dosage: 16/12.5 MG DAILY
     Route: 048
  3. CRESTOR [Suspect]
     Indication: HYPERCHOLESTEROLAEMIA
     Route: 048
     Dates: start: 20070101

REACTIONS (3)
  - BLOOD PRESSURE INADEQUATELY CONTROLLED [None]
  - DRUG INEFFECTIVE [None]
  - LIGAMENT INJURY [None]
